FAERS Safety Report 8154752-8 (Version None)
Quarter: 2012Q1

REPORT INFORMATION
  Report Type: 
  Country: None (occurrence: None)
  Receive Date: 20120221
  Receipt Date: 20120206
  Transmission Date: 20120608
  Serious: Yes (Hospitalization)
  Sender: FDA-Public Use
  Company Number: PHHY2012CA007584

PATIENT
  Sex: Male

DRUGS (13)
  1. LACTULOSE [Concomitant]
  2. TOPAMAX [Concomitant]
  3. NEURONTIN [Concomitant]
  4. EFFEXOR XR [Concomitant]
  5. CLOZARIL [Suspect]
     Indication: PSYCHOTIC DISORDER
     Dosage: 225 MG, UNK
     Dates: start: 20100628
  6. SENOKOT                                 /UNK/ [Concomitant]
  7. COLACE [Concomitant]
  8. METFORMIN HCL [Concomitant]
  9. LIPITOR [Concomitant]
  10. CLONAZEPAM [Concomitant]
  11. SINEMET CR [Concomitant]
  12. SYNTHROID [Concomitant]
  13. DETROL [Concomitant]

REACTIONS (3)
  - FALL [None]
  - ORTHOSTATIC HYPOTENSION [None]
  - GAIT DISTURBANCE [None]
